FAERS Safety Report 19494861 (Version 2)
Quarter: 2021Q3

REPORT INFORMATION
  Report Type: Spontaneous
  Country: US (occurrence: US)
  Receive Date: 20210705
  Receipt Date: 20210728
  Transmission Date: 20211014
  Serious: No
  Sender: FDA-Public Use
  Company Number: US-JNJFOC-20210667392

PATIENT
  Age: 50 Year
  Sex: Female

DRUGS (9)
  1. PROTONIX [Suspect]
     Active Substance: PANTOPRAZOLE SODIUM
     Indication: PLASMA CELL MYELOMA
     Route: 065
     Dates: start: 20210615
  2. LEVAQUIN [Suspect]
     Active Substance: LEVOFLOXACIN
     Indication: PLASMA CELL MYELOMA
     Route: 065
     Dates: start: 20210615
  3. REVLIMID [Suspect]
     Active Substance: LENALIDOMIDE
     Indication: PLASMA CELL MYELOMA
     Route: 065
     Dates: start: 20210615
  4. ASPRIN [Suspect]
     Active Substance: ASPIRIN
     Indication: PLASMA CELL MYELOMA
     Route: 065
     Dates: start: 20210615
  5. DARZALEX FASPRO [Suspect]
     Active Substance: DARATUMUMAB\HYALURONIDASE-FIHJ
     Indication: PLASMA CELL MYELOMA
     Route: 058
     Dates: start: 20210615
  6. ACYCLOVIR [ACICLOVIR] [Suspect]
     Active Substance: ACYCLOVIR
     Indication: PLASMA CELL MYELOMA
     Route: 065
     Dates: start: 20210615
  7. DEXAMETHASONE. [Suspect]
     Active Substance: DEXAMETHASONE
     Indication: PLASMA CELL MYELOMA
     Route: 065
     Dates: start: 20210615
  8. VELCADE [Suspect]
     Active Substance: BORTEZOMIB
     Indication: PLASMA CELL MYELOMA
     Route: 065
     Dates: start: 20210615
  9. OXYCODONE [Suspect]
     Active Substance: OXYCODONE
     Indication: PLASMA CELL MYELOMA
     Route: 065
     Dates: start: 20210615

REACTIONS (2)
  - Injection site erythema [Unknown]
  - Injection site rash [Recovered/Resolved]

NARRATIVE: CASE EVENT DATE: 20210622
